FAERS Safety Report 20414221 (Version 1)
Quarter: 2022Q1

REPORT INFORMATION
  Report Type: Spontaneous
  Country: GB (occurrence: GB)
  Receive Date: 20220202
  Receipt Date: 20220202
  Transmission Date: 20220423
  Serious: Yes (Other)
  Sender: FDA-Public Use
  Company Number: GB-NOVOPROD-865330

PATIENT
  Age: 66 Year
  Sex: Female
  Weight: 88 kg

DRUGS (15)
  1. INSULIN ASPART [Concomitant]
     Active Substance: INSULIN ASPART
     Indication: Product used for unknown indication
     Dosage: UNK
     Route: 065
  2. METFORMIN [Concomitant]
     Active Substance: METFORMIN HYDROCHLORIDE
     Indication: Product used for unknown indication
     Dosage: 1 G, BID
     Route: 048
  3. OZEMPIC [Suspect]
     Active Substance: SEMAGLUTIDE
     Dosage: 1MG/0.74ML
     Route: 058
     Dates: start: 20210325, end: 20210520
  4. OZEMPIC [Suspect]
     Active Substance: SEMAGLUTIDE
     Indication: Type 2 diabetes mellitus
     Dosage: 0.25 MG
     Route: 058
     Dates: end: 20210128
  5. OZEMPIC [Suspect]
     Active Substance: SEMAGLUTIDE
     Dosage: 0.5 MG QW
     Route: 058
     Dates: start: 20210128, end: 20210325
  6. OZEMPIC [Suspect]
     Active Substance: SEMAGLUTIDE
     Dosage: 0.5 MG QW
     Route: 058
     Dates: start: 20211102
  7. LEVOTHYROXINE [Concomitant]
     Active Substance: LEVOTHYROXINE
     Dosage: 100MCG, 1 TO BE TAKEN DAILY
     Route: 065
  8. LEVOTHYROXINE [Concomitant]
     Active Substance: LEVOTHYROXINE
     Indication: Product used for unknown indication
     Dosage: 1 TO BE TAKEN EACH MORNING AT LEAST 30MIN BEFORE BREAKFAST
     Route: 065
  9. NARATRIPTAN [Concomitant]
     Active Substance: NARATRIPTAN HYDROCHLORIDE
     Indication: Product used for unknown indication
     Dosage: UNK
     Route: 065
  10. LOSARTAN ^AGP^ [Concomitant]
     Dosage: 50 MG, QD
     Route: 065
  11. LOSARTAN ^AGP^ [Concomitant]
     Indication: Product used for unknown indication
     Dosage: 25 MG, QD
     Route: 065
  12. PRAVASTATIN +PHARMA [Concomitant]
     Indication: Product used for unknown indication
     Dosage: 20 MG, QD AT NIGHT
     Route: 065
  13. EMPAGLIFLOZIN [Concomitant]
     Active Substance: EMPAGLIFLOZIN
     Indication: Product used for unknown indication
     Dosage: 25 MG, QD
     Route: 048
  14. ASPIRIN [Concomitant]
     Active Substance: ASPIRIN
     Indication: Product used for unknown indication
     Dosage: 75 MG, QD
     Route: 048
  15. LANSOPRAZOLE [Concomitant]
     Active Substance: LANSOPRAZOLE
     Indication: Gastrooesophageal reflux disease
     Dosage: 15 MG  ONE TO BE TAKEN EACH MORNING
     Route: 065
     Dates: start: 20210225

REACTIONS (20)
  - Chest pain [Recovered/Resolved]
  - Hiccups [Recovered/Resolved]
  - Musculoskeletal pain [Recovered/Resolved]
  - Back pain [Recovered/Resolved]
  - Malaise [Recovered/Resolved]
  - Carbohydrate antigen 19-9 increased [Unknown]
  - Gastric polyps [Unknown]
  - Abdominal pain upper [Recovered/Resolved]
  - Decreased appetite [Recovered/Resolved]
  - Nausea [Recovered/Resolved]
  - Vomiting [Recovered/Resolved]
  - Abdominal distension [Recovered/Resolved]
  - Abdominal pain [Recovered/Resolved]
  - Gastrooesophageal reflux disease [Recovered/Resolved]
  - Dyspepsia [Recovered/Resolved]
  - Diarrhoea [Recovered/Resolved]
  - Eructation [Recovered/Resolved]
  - Weight decreased [Unknown]
  - Intentional product use issue [Unknown]
  - Product dispensing issue [Unknown]

NARRATIVE: CASE EVENT DATE: 20210114
